FAERS Safety Report 19782923 (Version 2)
Quarter: 2021Q3

REPORT INFORMATION
  Report Type: Spontaneous
  Country: JP (occurrence: JP)
  Receive Date: 20210902
  Receipt Date: 20210916
  Transmission Date: 20211014
  Serious: Yes (Death, Life-Threatening, Hospitalization, Other)
  Sender: FDA-Public Use
  Company Number: JP-KYOWAKIRIN-2021AKK014181

PATIENT

DRUGS (80)
  1. MAGMITT [Concomitant]
     Active Substance: MAGNESIUM OXIDE
     Dosage: 660 MG, TID, AFTER BREAKFAST,  LUNCH AND DINNER
     Route: 048
     Dates: start: 20210801, end: 20210802
  2. FAMOTIDINE. [Concomitant]
     Active Substance: FAMOTIDINE
     Dosage: 20 MG, QD , AFTER BREAKFAST
     Route: 048
     Dates: start: 20210726, end: 20210802
  3. CALONAL [Concomitant]
     Active Substance: ACETAMINOPHEN
     Dosage: 2 DF, BID, RIGHT AFTER WAKING UP AND AFTER LUNCH
     Route: 048
     Dates: start: 20210803, end: 20210803
  4. ACELIO [Concomitant]
     Active Substance: ACETAMINOPHEN
     Dosage: 500 MG, QD
     Route: 042
     Dates: start: 20210728, end: 20210728
  5. CEFEPIME DIHYDROCHLORIDE [Concomitant]
     Active Substance: CEFEPIME HYDROCHLORIDE
     Dosage: 2 G, QD
     Route: 042
     Dates: start: 20210803, end: 20210803
  6. CEFEPIME DIHYDROCHLORIDE [Concomitant]
     Active Substance: CEFEPIME HYDROCHLORIDE
     Dosage: 2 G, BID
     Route: 042
     Dates: start: 20210811, end: 20210815
  7. SOLDEM 3A [Concomitant]
     Active Substance: CARBOHYDRATES\POTASSIUM CHLORIDE\SODIUM CHLORIDE\SODIUM LACTATE
     Dosage: 500 ML, BID
     Route: 065
     Dates: start: 20210819, end: 20210819
  8. TAKECAB [Concomitant]
     Active Substance: VONOPRAZAN FUMARATE
     Dosage: 20 MG, QD, AFTER DINNER
     Route: 048
     Dates: start: 20210729, end: 20210729
  9. POTASSIUM CHLORIDE. [Concomitant]
     Active Substance: POTASSIUM CHLORIDE
     Dosage: 600 MG, QD, AFTER BREAKFAST
     Route: 048
     Dates: start: 20210803, end: 20210803
  10. VANCOMYCIN HYDROCHLORIDE. [Concomitant]
     Active Substance: VANCOMYCIN HYDROCHLORIDE
     Dosage: 0.5 G, QD
     Route: 041
     Dates: start: 20210727, end: 20210730
  11. OMEPRAZOLE. [Concomitant]
     Active Substance: OMEPRAZOLE
     Dosage: 20 MG, BID
     Route: 065
     Dates: start: 20210807, end: 20210809
  12. FENTANYL. [Concomitant]
     Active Substance: FENTANYL
     Dosage: 0.5 MG, QD
     Route: 065
     Dates: start: 20210817, end: 20210817
  13. NORADRENALINE [NOREPINEPHRINE] [Concomitant]
     Active Substance: NOREPINEPHRINE
     Dosage: 3 MG, QD
     Route: 065
     Dates: start: 20210818, end: 20210819
  14. PREDONINE [PREDNISOLONE SODIUM SUCCINATE] [Concomitant]
     Active Substance: PREDNISOLONE SODIUM SUCCINATE
     Dosage: 10 MG, QD
     Route: 065
     Dates: start: 20210726, end: 20210730
  15. MAGMITT [Concomitant]
     Active Substance: MAGNESIUM OXIDE
     Dosage: 660 MG, BID , AFTER BREAKFAST AND LUNCH
     Route: 048
     Dates: start: 20210803, end: 20210803
  16. CALONAL [Concomitant]
     Active Substance: ACETAMINOPHEN
     Dosage: 2 DF, QID, RIGHT AFTER WAKING UP, AFTER LUNCH, DINNER AND BEFORE BEDTIME
     Route: 048
     Dates: start: 20210729, end: 20210802
  17. FUNGIZONE [Concomitant]
     Active Substance: AMPHOTERICIN B
     Dosage: 100 MG/ML, BID
     Route: 048
     Dates: start: 20210802, end: 20210802
  18. FUNGIZONE [Concomitant]
     Active Substance: AMPHOTERICIN B
     Dosage: 100 MG/ML, QD, AFTER BREAKFAST
     Route: 048
     Dates: start: 20210803, end: 20210803
  19. ALLOID G [Concomitant]
     Active Substance: SODIUM ALGINATE
     Dosage: 60 ML, TID, BEFORE BREAKFAST, LUNCH AND DINNER
     Route: 048
     Dates: start: 20210731, end: 20210802
  20. HYDROCORTONE [HYDROCORTISONE ACETATE] [Concomitant]
     Dosage: 100 MG, QD
     Route: 065
     Dates: start: 20210728, end: 20210728
  21. POLARAMINE [Concomitant]
     Active Substance: DEXCHLORPHENIRAMINE MALEATE
     Dosage: 5 MG, QD
     Route: 065
     Dates: start: 20210816, end: 20210816
  22. FENTANYL. [Concomitant]
     Active Substance: FENTANYL
     Dosage: 0.5 MG, QD
     Route: 065
     Dates: start: 20210808, end: 20210808
  23. DOXORUBICIN HYDROCHLORIDE. [Concomitant]
     Active Substance: DOXORUBICIN HYDROCHLORIDE
     Indication: ADULT T-CELL LYMPHOMA/LEUKAEMIA
     Dosage: UNK
     Route: 065
  24. PREDNISOLONE. [Concomitant]
     Active Substance: PREDNISOLONE
     Dosage: 60 MG
     Route: 065
     Dates: start: 20210809
  25. PREDONINE [PREDNISOLONE SODIUM SUCCINATE] [Concomitant]
     Active Substance: PREDNISOLONE SODIUM SUCCINATE
     Dosage: 20 MG, QD
     Route: 065
     Dates: start: 20210726, end: 20210730
  26. MAGMITT [Concomitant]
     Active Substance: MAGNESIUM OXIDE
     Dosage: 660 MG, QD, AFTER DINNER
     Route: 048
     Dates: start: 20210731, end: 20210731
  27. OXIFAST [Concomitant]
     Active Substance: OXYCODONE
     Dosage: UNK UNK, QD
     Route: 065
     Dates: start: 20210806, end: 20210806
  28. ACELIO [Concomitant]
     Active Substance: ACETAMINOPHEN
     Dosage: 1000 MG, QD
     Route: 042
     Dates: start: 20210806, end: 20210806
  29. POTASSIUM CHLORIDE. [Concomitant]
     Active Substance: POTASSIUM CHLORIDE
     Dosage: 600 MG, QD
     Route: 048
     Dates: start: 20210802, end: 20210802
  30. FENTANYL. [Concomitant]
     Active Substance: FENTANYL
     Dosage: 0.5 MG, QD
     Route: 065
     Dates: start: 20210806, end: 20210806
  31. GLUCOSE [Concomitant]
     Active Substance: DEXTROSE
     Dosage: 100 ML, QD
     Route: 065
     Dates: start: 20210819, end: 20210819
  32. CYCLOPHOSPHAMIDE. [Concomitant]
     Active Substance: CYCLOPHOSPHAMIDE
     Indication: ADULT T-CELL LYMPHOMA/LEUKAEMIA
     Dosage: UNK
     Route: 065
  33. ACETAMINOPHEN. [Concomitant]
     Active Substance: ACETAMINOPHEN
     Indication: ADULT T-CELL LYMPHOMA/LEUKAEMIA
     Dosage: UNK
     Route: 065
  34. FUNGIZONE [Concomitant]
     Active Substance: AMPHOTERICIN B
     Dosage: 100 MG/ML, BID
     Route: 048
     Dates: start: 20210727, end: 20210727
  35. CEFEPIME DIHYDROCHLORIDE [Concomitant]
     Active Substance: CEFEPIME HYDROCHLORIDE
     Dosage: 2 G, QD
     Route: 042
     Dates: start: 20210806, end: 20210806
  36. CEFEPIME DIHYDROCHLORIDE [Concomitant]
     Active Substance: CEFEPIME HYDROCHLORIDE
     Dosage: 2 G, BID
     Route: 042
     Dates: start: 20210807, end: 20210809
  37. CEFEPIME DIHYDROCHLORIDE [Concomitant]
     Active Substance: CEFEPIME HYDROCHLORIDE
     Dosage: 2 G, QD
     Route: 042
     Dates: start: 20210816, end: 20210818
  38. ALLOID G [Concomitant]
     Active Substance: SODIUM ALGINATE
     Dosage: 60 ML, BID
     Route: 048
     Dates: start: 20210730, end: 20210730
  39. VANCOMYCIN HYDROCHLORIDE. [Concomitant]
     Active Substance: VANCOMYCIN HYDROCHLORIDE
     Dosage: 0.25 G, QD
     Route: 041
     Dates: start: 20210801, end: 20210803
  40. VANCOMYCIN HYDROCHLORIDE. [Concomitant]
     Active Substance: VANCOMYCIN HYDROCHLORIDE
     Dosage: 0.375 G, QD
     Route: 041
     Dates: start: 20210806, end: 20210808
  41. OMEPRAZOLE. [Concomitant]
     Active Substance: OMEPRAZOLE
     Dosage: 20 MG, QD
     Route: 065
     Dates: start: 20210810, end: 20210810
  42. DORMICUM [MIDAZOLAM] [Concomitant]
     Active Substance: MIDAZOLAM HYDROCHLORIDE
     Dosage: 10 MG, QD
     Route: 065
     Dates: start: 20210730, end: 20210730
  43. FENTANYL. [Concomitant]
     Active Substance: FENTANYL
     Dosage: 0.5 MG, QD
     Route: 065
     Dates: start: 20210811, end: 20210811
  44. FENTANYL. [Concomitant]
     Active Substance: FENTANYL
     Dosage: 0.5 MG, QD
     Route: 065
     Dates: start: 20210815, end: 20210815
  45. HUMULIN R [Concomitant]
     Active Substance: INSULIN HUMAN
     Dosage: 1000 IU, QD
     Route: 065
     Dates: start: 20210816, end: 20210816
  46. PREDNISOLONE. [Concomitant]
     Active Substance: PREDNISOLONE
     Indication: ADULT T-CELL LYMPHOMA/LEUKAEMIA
     Dosage: UNK
     Route: 065
  47. OMEPRAZOLE. [Concomitant]
     Active Substance: OMEPRAZOLE
     Dosage: 20 MG, QD
     Route: 065
     Dates: start: 20210728, end: 20210728
  48. OMEPRAZOLE. [Concomitant]
     Active Substance: OMEPRAZOLE
     Dosage: 20 MG, QD
     Route: 065
     Dates: start: 20210818, end: 20210818
  49. GLUCOSE [Concomitant]
     Active Substance: DEXTROSE
     Dosage: 10 ML, QD
     Route: 065
     Dates: start: 20210816, end: 20210816
  50. GLUCOSE [Concomitant]
     Active Substance: DEXTROSE
     Dosage: 500 ML, QD
     Dates: start: 20210816, end: 20210816
  51. BAKTAR [Concomitant]
     Active Substance: SULFAMETHOXAZOLE\TRIMETHOPRIM
     Dosage: 1 DF, QD , AFTER BREAKFAST
     Route: 048
     Dates: start: 20210726, end: 20210803
  52. MAGMITT [Concomitant]
     Active Substance: MAGNESIUM OXIDE
     Dosage: 660 MG, BID, AFTER BREAKFAST AND LUNCH
     Route: 048
     Dates: start: 20210727, end: 20210727
  53. OMEPRAZOLE. [Concomitant]
     Active Substance: OMEPRAZOLE
     Dosage: 20 MG, BID
     Route: 065
     Dates: start: 20210726, end: 20210727
  54. VINCRISTINE SULFATE. [Concomitant]
     Active Substance: VINCRISTINE SULFATE
     Indication: ADULT T-CELL LYMPHOMA/LEUKAEMIA
     Dosage: UNK
     Route: 065
  55. PREDONINE [PREDNISOLONE SODIUM SUCCINATE] [Concomitant]
     Active Substance: PREDNISOLONE SODIUM SUCCINATE
     Indication: ADULT T-CELL LYMPHOMA/LEUKAEMIA
     Dosage: 70 MG
     Route: 065
  56. PREDONINE [PREDNISOLONE SODIUM SUCCINATE] [Concomitant]
     Active Substance: PREDNISOLONE SODIUM SUCCINATE
     Dosage: 40 MG, QD
     Route: 065
     Dates: start: 20210726, end: 20210730
  57. PREDONINE [PREDNISOLONE SODIUM SUCCINATE] [Concomitant]
     Active Substance: PREDNISOLONE SODIUM SUCCINATE
     Dosage: 40 MG, QD
     Route: 065
     Dates: start: 20210817, end: 20210819
  58. MAGMITT [Concomitant]
     Active Substance: MAGNESIUM OXIDE
     Dosage: 660 MG, QD, AFTER DINNER
     Route: 048
     Dates: start: 20210728, end: 20210728
  59. ACELIO [Concomitant]
     Active Substance: ACETAMINOPHEN
     Dosage: 500 MG, QD
     Route: 042
     Dates: start: 20210726, end: 20210726
  60. CEFEPIME DIHYDROCHLORIDE [Concomitant]
     Active Substance: CEFEPIME HYDROCHLORIDE
     Dosage: 2 G, BID
     Route: 042
     Dates: start: 20210726, end: 20210802
  61. VANCOMYCIN HYDROCHLORIDE. [Concomitant]
     Active Substance: VANCOMYCIN HYDROCHLORIDE
     Dosage: 0.25 G, BID
     Route: 041
     Dates: start: 20210726, end: 20210726
  62. HYDROCORTONE [HYDROCORTISONE ACETATE] [Concomitant]
     Dosage: 100 MG, QD
     Route: 065
     Dates: start: 20210816, end: 20210816
  63. FENTANYL. [Concomitant]
     Active Substance: FENTANYL
     Dosage: 0.5 MG, QD
     Route: 065
     Dates: start: 20210813, end: 20210813
  64. FENTANYL. [Concomitant]
     Active Substance: FENTANYL
     Dosage: 0.5 MG, QD
     Route: 065
     Dates: start: 20210819, end: 20210819
  65. HUMULIN R [Concomitant]
     Active Substance: INSULIN HUMAN
     Dosage: 200 IU, BID
     Route: 065
     Dates: start: 20210807, end: 20210807
  66. GLUCOSE [Concomitant]
     Active Substance: DEXTROSE
     Dosage: 40 ML, QD
     Route: 065
     Dates: start: 20210816, end: 20210818
  67. POTELIGEO [Suspect]
     Active Substance: MOGAMULIZUMAB-KPKC
     Indication: ADULT T-CELL LYMPHOMA/LEUKAEMIA
     Dosage: 40 MG, QD
     Route: 041
     Dates: start: 20210728, end: 20210728
  68. PREDNISOLONE. [Concomitant]
     Active Substance: PREDNISOLONE
     Dosage: 50 MG
     Route: 065
     Dates: start: 20210811
  69. PREDNISOLONE. [Concomitant]
     Active Substance: PREDNISOLONE
     Dosage: 40 MG
     Route: 065
     Dates: start: 20210815
  70. CALONAL [Concomitant]
     Active Substance: ACETAMINOPHEN
     Dosage: 2 DF, BID AFTER LUNCH AND DINNER
     Route: 048
     Dates: start: 20210726, end: 20210728
  71. FUNGIZONE [Concomitant]
     Active Substance: AMPHOTERICIN B
     Dosage: 100 MG/ML, QID, AFTER MORNING, LUNCH, DINNER AND BEFORE BEDTIME
     Route: 048
     Dates: start: 20210728, end: 20210802
  72. CEFEPIME DIHYDROCHLORIDE [Concomitant]
     Active Substance: CEFEPIME HYDROCHLORIDE
     Dosage: 2 G, QD
     Route: 042
     Dates: start: 20210810, end: 20210810
  73. SOLDEM 3A [Concomitant]
     Active Substance: CARBOHYDRATES\POTASSIUM CHLORIDE\SODIUM CHLORIDE\SODIUM LACTATE
     Dosage: 500 ML, QD
     Route: 065
     Dates: start: 20210726, end: 20210802
  74. SOLDEM 3A [Concomitant]
     Active Substance: CARBOHYDRATES\POTASSIUM CHLORIDE\SODIUM CHLORIDE\SODIUM LACTATE
     Dosage: 500 ML, QD
     Route: 065
     Dates: start: 20210807, end: 20210818
  75. TAKECAB [Concomitant]
     Active Substance: VONOPRAZAN FUMARATE
     Dosage: 20 MG, QD, AFTER BREAKFAST
     Route: 048
     Dates: start: 20210730, end: 20210803
  76. ALLOID G [Concomitant]
     Active Substance: SODIUM ALGINATE
     Dosage: 60 ML, BID, BEFORE BREAKFAST AND LUNCH
     Route: 048
     Dates: start: 20210803, end: 20210803
  77. OMEPRAZOLE. [Concomitant]
     Active Substance: OMEPRAZOLE
     Dosage: 20 MG, QD
     Route: 065
     Dates: start: 20210806, end: 20210806
  78. OMEPRAZOLE. [Concomitant]
     Active Substance: OMEPRAZOLE
     Dosage: 20 MG, BID
     Route: 065
     Dates: start: 20210811, end: 20210817
  79. POLARAMINE [Concomitant]
     Active Substance: DEXCHLORPHENIRAMINE MALEATE
     Dosage: 5 MG, QD
     Route: 065
     Dates: start: 20210728, end: 20210728
  80. SOLU?MEDROL [Concomitant]
     Active Substance: METHYLPREDNISOLONE SODIUM SUCCINATE
     Dosage: 1000 MG, QD
     Route: 042
     Dates: start: 20210806, end: 20210808

REACTIONS (2)
  - Toxic epidermal necrolysis [Fatal]
  - Condition aggravated [Fatal]

NARRATIVE: CASE EVENT DATE: 20210805
